FAERS Safety Report 6426089-6 (Version None)
Quarter: 2009Q4

REPORT INFORMATION
  Report Type: 
  Country: None (occurrence: None)
  Receive Date: 20091103
  Receipt Date: 20091103
  Transmission Date: 20100525
  Serious: Yes (Other)
  Sender: FDA-Public Use
  Company Number: None

PATIENT
  Sex: Female

DRUGS (1)
  1. ENBREL [Suspect]
     Indication: PSORIATIC ARTHROPATHY
     Dosage: 50MG ONCE WEEKLY SUB-Q
     Route: 058
     Dates: start: 20090306

REACTIONS (5)
  - DYSPNOEA [None]
  - IMMEDIATE POST-INJECTION REACTION [None]
  - INJECTION SITE ERYTHEMA [None]
  - INJECTION SITE RASH [None]
  - LOSS OF CONSCIOUSNESS [None]
